FAERS Safety Report 8328364 (Version 2)
Quarter: 2013Q2

REPORT INFORMATION
  Report Type: Spontaneous
  Country: US (occurrence: None)
  Receive Date: 20111130
  Receipt Date: 20121130
  Transmission Date: 20140414
  Serious: Yes (Hospitalization)
  Sender: FDA-Public Use
  Company Number: 336992

PATIENT
  Age: 56 Year
  Sex: Male
  Weight: 122.4 kg

DRUGS (4)
  1. LEVEMIR [Suspect]
     Indication: DIABETES MELLITUS
     Route: 058
     Dates: start: 201001
  2. NOVOLOG [Suspect]
     Indication: DIABETES MELLITUS
     Route: 058
     Dates: start: 201001
  3. NOVOLOG [Suspect]
  4. OXYCODONE (OXYCODONE) [Concomitant]

REACTIONS (1)
  - BLOOD GLUCOSE INCREASED [None]
